FAERS Safety Report 5890505-9 (Version None)
Quarter: 2008Q3

REPORT INFORMATION
  Report Type: 
  Country: None (occurrence: None)
  Receive Date: 20080918
  Receipt Date: 20080902
  Transmission Date: 20090109
  Serious: Yes (Disabling, Other)
  Sender: FDA-Public Use
  Company Number: 2008BI022654

PATIENT
  Age: 57 Year
  Sex: Female
  Weight: 48 kg

DRUGS (1)
  1. TYSABRI [Suspect]
     Indication: RELAPSING-REMITTING MULTIPLE SCLEROSIS
     Dosage: 300 MG; QW; IV
     Route: 042
     Dates: start: 20080303, end: 20080303

REACTIONS (5)
  - BREAST CANCER FEMALE [None]
  - DYSGEUSIA [None]
  - FACIAL PARESIS [None]
  - HERPES ZOSTER [None]
  - TRIGEMINAL NEURALGIA [None]
